FAERS Safety Report 6004091-6 (Version None)
Quarter: 2008Q4

REPORT INFORMATION
  Report Type: 
  Country: None (occurrence: None)
  Receive Date: 20081216
  Receipt Date: 20081216
  Transmission Date: 20090506
  Serious: Yes (Other)
  Sender: FDA-Public Use
  Company Number: None

PATIENT
  Age: 72 Year
  Sex: Male
  Weight: 86.1834 kg

DRUGS (2)
  1. METOPROLOL TARTRATE [Suspect]
     Indication: MYOCARDIAL INFARCTION
     Dosage: 1 TABLET 3 TIMES A DAY PO
     Route: 048
     Dates: start: 20081126, end: 20081212
  2. METOPROLOL TARTRATE [Suspect]
     Indication: MYOCARDIAL INFARCTION
     Dosage: 1 TABLET 3 TIMES A DAY PO
     Route: 048
     Dates: start: 20081103, end: 20081126

REACTIONS (5)
  - ASTHENIA [None]
  - DIARRHOEA [None]
  - FAECAL INCONTINENCE [None]
  - FLATULENCE [None]
  - PRODUCT QUALITY ISSUE [None]
